FAERS Safety Report 11092756 (Version 2)
Quarter: 2015Q2

REPORT INFORMATION
  Report Type: Spontaneous
  Country: JP (occurrence: None)
  Receive Date: 20150504
  Receipt Date: 20150514
  Transmission Date: 20150821
  Serious: Yes (Hospitalization, Other)
  Sender: FDA-Public Use
  Company Number: CLINIGEN-003492

PATIENT
  Age: 41 Year
  Sex: Male
  Weight: 63 kg

DRUGS (12)
  1. NEOSYNESIN [Concomitant]
     Active Substance: PHENYLEPHRINE HYDROCHLORIDE
  2. MEROPEN [Concomitant]
     Active Substance: MEROPENEM
  3. CERCINE [Concomitant]
     Active Substance: DIAZEPAM
  4. FOSCAVIR [Suspect]
     Active Substance: FOSCARNET SODIUM
     Indication: HUMAN HERPESVIRUS 6 INFECTION
     Route: 041
     Dates: start: 20150309, end: 20150328
  5. PROPOFOL. [Concomitant]
     Active Substance: PROPOFOL
  6. FOSCAVIR [Suspect]
     Active Substance: FOSCARNET SODIUM
     Indication: ENCEPHALITIS
     Route: 041
     Dates: start: 20150309, end: 20150328
  7. MEYLON [Concomitant]
     Active Substance: SODIUM BICARBONATE
  8. MICAFUNGIN SODIUM [Concomitant]
     Active Substance: MICAFUNGIN SODIUM
  9. MAGNESIUM SULFATE. [Concomitant]
     Active Substance: MAGNESIUM SULFATE
  10. ROCURONIUM BROMIDE. [Concomitant]
     Active Substance: ROCURONIUM BROMIDE
  11. KCL [Concomitant]
     Active Substance: POTASSIUM CHLORIDE
  12. OMEPRAL [Concomitant]
     Active Substance: OMEPRAZOLE

REACTIONS (4)
  - Dialysis [None]
  - Urine output increased [None]
  - Hypernatraemia [None]
  - Renal failure [None]

NARRATIVE: CASE EVENT DATE: 20150310
